FAERS Safety Report 9830196 (Version 3)
Quarter: 2014Q1

REPORT INFORMATION
  Report Type: Report from Study
  Country: US (occurrence: US)
  Receive Date: 20140120
  Receipt Date: 20140205
  Transmission Date: 20141002
  Serious: Yes (Hospitalization, Other)
  Sender: FDA-Public Use
  Company Number: US-ACTELION-A-US2013-78081

PATIENT
  Age: 58 Year
  Sex: Female

DRUGS (12)
  1. VELETRI [Suspect]
     Indication: PULMONARY ARTERIAL HYPERTENSION
     Dosage: 27 NG/KG, PER MIN
     Route: 042
     Dates: start: 20100820
  2. TRACLEER [Concomitant]
     Indication: PULMONARY ARTERIAL HYPERTENSION
     Dosage: UNK
     Route: 048
  3. LISINOPRIL [Concomitant]
  4. TORSEMIDE [Concomitant]
  5. ALDACTONE [Concomitant]
  6. DIGOXIN [Concomitant]
  7. CYMBALTA [Concomitant]
  8. TRAMADOL [Concomitant]
  9. GABAPENTIN [Concomitant]
  10. LEVEMIR [Concomitant]
  11. NOVOLOG [Concomitant]
  12. HYDROCODONE [Concomitant]

REACTIONS (11)
  - Streptococcal sepsis [Not Recovered/Not Resolved]
  - Sepsis [Not Recovered/Not Resolved]
  - Staphylococcal bacteraemia [Not Recovered/Not Resolved]
  - Klebsiella sepsis [Not Recovered/Not Resolved]
  - Pyrexia [Not Recovered/Not Resolved]
  - Chills [Not Recovered/Not Resolved]
  - White blood cell count increased [Not Recovered/Not Resolved]
  - Platelet count decreased [Not Recovered/Not Resolved]
  - Blood culture positive [Not Recovered/Not Resolved]
  - Device related infection [Not Recovered/Not Resolved]
  - Catheter site infection [Not Recovered/Not Resolved]
